FAERS Safety Report 8124468-2 (Version None)
Quarter: 2012Q1

REPORT INFORMATION
  Report Type: 
  Country: None (occurrence: None)
  Receive Date: 20120209
  Receipt Date: 20120207
  Transmission Date: 20120608
  Serious: No
  Sender: FDA-Public Use
  Company Number: US-BAYER-2012-012653

PATIENT
  Sex: Female

DRUGS (1)
  1. MIRENA [Suspect]
     Dosage: 20 MCG/24HR, CONT
     Route: 015
     Dates: start: 20110501

REACTIONS (9)
  - DEPRESSION [None]
  - DYSPAREUNIA [None]
  - WEIGHT INCREASED [None]
  - APATHY [None]
  - LOSS OF LIBIDO [None]
  - ABDOMINAL PAIN [None]
  - NAUSEA [None]
  - NERVOUSNESS [None]
  - BACK PAIN [None]
